FAERS Safety Report 23773974 (Version 2)
Quarter: 2024Q2

REPORT INFORMATION
  Report Type: Report from Study
  Country: IN (occurrence: IN)
  Receive Date: 20240423
  Receipt Date: 20240501
  Transmission Date: 20240716
  Serious: Yes (Death, Other)
  Sender: FDA-Public Use
  Company Number: IN-PFIZER INC-202400091720

PATIENT
  Age: 42 Year
  Sex: Male

DRUGS (1)
  1. FLUCONAZOLE [Suspect]
     Active Substance: FLUCONAZOLE
     Indication: Trichosporon infection
     Dosage: 200 MG, 1X/DAY,14 DAYS

REACTIONS (1)
  - Death [Fatal]
